FAERS Safety Report 4880784-9 (Version None)
Quarter: 2006Q1

REPORT INFORMATION
  Report Type: 
  Country: None (occurrence: None)
  Receive Date: 20060111
  Receipt Date: 20050329
  Transmission Date: 20060701
  Serious: No
  Sender: FDA-Public Use
  Company Number: 2005S1000135

PATIENT

DRUGS (54)
  1. CUBICIN [Suspect]
     Dosage: 300 MG;Q24H;IV
     Route: 042
     Dates: start: 20040721, end: 20050117
  2. ALBUMIN (HUMAN) [Concomitant]
  3. CALCIUM CARBONATE [Concomitant]
  4. CAPSAICIN [Concomitant]
  5. CHLORHEXIDINE [Concomitant]
  6. CITALOPRAM [Concomitant]
  7. CLONAZEPAM [Concomitant]
  8. DARBEPOETIN ALFA [Concomitant]
  9. DIPHENHYDRAMINE [Concomitant]
  10. DOPAMINE [Concomitant]
  11. ESCITALOPRAM OXALATE [Concomitant]
  12. FUROSEMIDE [Concomitant]
  13. GABAPENTIN [Concomitant]
  14. GRANULOCYTE COLONY-STIMULATING FACTOR [Concomitant]
  15. HALOPERIDOL [Concomitant]
  16. HYDROCORTISONE [Concomitant]
  17. HYDROMORPHONE HCL [Concomitant]
  18. INSULIN HUMULIN REGULAR [Concomitant]
  19. POTASSIUM CHLORIDE [Concomitant]
  20. LAMOTRIGINE [Concomitant]
  21. LANSOPRAZOLE [Concomitant]
  22. LEVOTHYROXINE SODIUM [Concomitant]
  23. LOPERAMIDE [Concomitant]
  24. LORAZEPAM [Concomitant]
  25. MAGNESIUM GLUCONATE [Concomitant]
  26. MAGNESIUM SULFATE [Concomitant]
  27. METHYLPREDNISOLONE SODIUM SUCCINATE [Concomitant]
  28. METOCLOPRAMIDE [Concomitant]
  29. METOLAZONE [Concomitant]
  30. MULTI-VITAMIN [Concomitant]
  31. NITROGLYCERIN [Concomitant]
  32. NOREPINEPHRINE [Concomitant]
  33. OCTREOTIDE [Concomitant]
  34. PANTOPRAZOLE [Concomitant]
  35. PHENYTOIN [Concomitant]
  36. DEODORIZED TINCUTURE OF OPIUM [Concomitant]
  37. PREDNISONE [Concomitant]
  38. PROPOFOL [Concomitant]
  39. QUETIAPINE [Concomitant]
  40. RISPERIDONE [Concomitant]
  41. SODIUM BICARBONATE [Concomitant]
  42. SODIUM PHOSPHATES [Concomitant]
  43. SUCRALFATE [Concomitant]
  44. TACROLIMUS [Concomitant]
  45. URSODIOL [Concomitant]
  46. CASPOFUNGIN [Concomitant]
  47. CEFEPIME [Concomitant]
  48. ERYTHROMYCIN [Concomitant]
  49. GANCICLOVIR [Concomitant]
  50. LEVOFLOXACIN [Concomitant]
  51. LINEZOLID [Concomitant]
  52. VANCOMYCIN [Concomitant]
  53. VITAMIN K [Concomitant]
  54. VORICONAZOLE [Concomitant]

REACTIONS (1)
  - INTERNATIONAL NORMALISED RATIO INCREASED [None]
